FAERS Safety Report 19901843 (Version 1)
Quarter: 2021Q3

REPORT INFORMATION
  Report Type: Report from Study
  Country: None (occurrence: BR)
  Receive Date: 20210929
  Receipt Date: 20210929
  Transmission Date: 20211014
  Serious: Yes (Disabling)
  Sender: FDA-Public Use
  Company Number: BR-ABBVIE-21K-020-4096877-00

PATIENT
  Age: 66 Year
  Sex: Female
  Weight: 62 kg

DRUGS (3)
  1. HUMIRA [Suspect]
     Active Substance: ADALIMUMAB
     Indication: ANKYLOSING SPONDYLITIS
     Dosage: UNSPECIFIED DOSE
     Route: 058
     Dates: start: 20160504
  2. REVANGE (PARACETAMOL + TRAMADOL HYDROCHLORIDE) [Suspect]
     Active Substance: ACETAMINOPHEN\TRAMADOL HYDROCHLORIDE
     Indication: PAIN
     Route: 065
  3. HUMIRA [Suspect]
     Active Substance: ADALIMUMAB
     Dosage: UNSPECIFIED DOSE
     Route: 058

REACTIONS (11)
  - Aphasia [Unknown]
  - Weight decreased [Unknown]
  - Ageusia [Unknown]
  - Musculoskeletal stiffness [Unknown]
  - Dizziness [Unknown]
  - Muscle atrophy [Unknown]
  - Pain in extremity [Unknown]
  - Grip strength decreased [Unknown]
  - Pain [Unknown]
  - Gait inability [Unknown]
  - Back pain [Unknown]

NARRATIVE: CASE EVENT DATE: 202009
